FAERS Safety Report 10064616 (Version 1)
Quarter: 2014Q2

REPORT INFORMATION
  Report Type: Spontaneous
  Country: US (occurrence: None)
  Receive Date: 20140407
  Receipt Date: 20140407
  Transmission Date: 20141212
  Serious: Yes (Hospitalization)
  Sender: FDA-Public Use
  Company Number: None

PATIENT
  Age: 76 Year
  Sex: Male
  Weight: 57.8 kg

DRUGS (11)
  1. OXALIPLATIN [Suspect]
     Indication: PANCREATIC CARCINOMA
     Dosage: IN 500 ML D5W
     Route: 042
     Dates: start: 20140306
  2. 5-FLUOROURACIL [Suspect]
     Route: 042
     Dates: start: 20140306
  3. LEUCOVORIN [Concomitant]
  4. METFORMIN [Concomitant]
  5. REGLAN [Concomitant]
  6. LOSARTAN [Concomitant]
  7. SIMVASTATIN [Concomitant]
  8. ZOLOFT [Concomitant]
  9. CREON [Concomitant]
  10. IMODIUM A-D [Concomitant]
  11. TYLENOL [Concomitant]

REACTIONS (1)
  - Vomiting [None]
